FAERS Safety Report 5907537-4 (Version None)
Quarter: 2008Q4

REPORT INFORMATION
  Report Type: 
  Country: None (occurrence: None)
  Receive Date: 20081003
  Receipt Date: 20081001
  Transmission Date: 20090506
  Serious: Yes (Other)
  Sender: FDA-Public Use
  Company Number: A0749988A

PATIENT
  Age: 65 Year
  Sex: Female

DRUGS (5)
  1. ALLI [Suspect]
     Dates: start: 20080905
  2. LEVOTHYROXINE SODIUM [Concomitant]
  3. NEXIUM [Concomitant]
  4. ZETIA [Concomitant]
  5. HYZAAR [Concomitant]

REACTIONS (4)
  - DIARRHOEA [None]
  - FREQUENT BOWEL MOVEMENTS [None]
  - HAEMATOCHEZIA [None]
  - RECTAL HAEMORRHAGE [None]
